FAERS Safety Report 12457327 (Version 1)
Quarter: 2016Q2

REPORT INFORMATION
  Report Type: Spontaneous
  Country: US (occurrence: US)
  Receive Date: 20160610
  Receipt Date: 20160610
  Transmission Date: 20160815
  Serious: No
  Sender: FDA-Public Use
  Company Number: US-GLAXOSMITHKLINE-US2015GSK185621

PATIENT
  Sex: Female

DRUGS (2)
  1. ALBUTEROL. [Concomitant]
     Active Substance: ALBUTEROL
     Dosage: 3 DF, QD
  2. FLOVENT [Suspect]
     Active Substance: FLUTICASONE PROPIONATE
     Indication: ASTHMA
     Dosage: UNK UNK, U

REACTIONS (1)
  - Drug dose omission [Unknown]
